FAERS Safety Report 7464858-4 (Version None)
Quarter: 2011Q2

REPORT INFORMATION
  Report Type: 
  Country: None (occurrence: None)
  Receive Date: 20110509
  Receipt Date: 20110428
  Transmission Date: 20111010
  Serious: Yes (Hospitalization)
  Sender: FDA-Public Use
  Company Number: US-NOVOPROD-327384

PATIENT
  Age: 60 Year
  Sex: Female
  Weight: 90.703 kg

DRUGS (2)
  1. NORDITROPIN NORDIFLEX [Suspect]
     Indication: BLOOD GROWTH HORMONE DECREASED
     Dosage: 5 MG, QD
     Route: 058
     Dates: start: 20110301
  2. THYROID TAB [Concomitant]
     Indication: THYROID DISORDER
     Dosage: UNKNOWN

REACTIONS (3)
  - PHARYNGEAL INFLAMMATION [None]
  - ASTHMA [None]
  - CYST [None]
